FAERS Safety Report 8837869 (Version 1)
Quarter: 2012Q4

REPORT INFORMATION
  Report Type: 
  Country: GB (occurrence: GB)
  Receive Date: 20121012
  Receipt Date: 20121012
  Transmission Date: 20130627
  Serious: Yes (Death)
  Sender: FDA-Public Use
  Company Number: GB-ALLERGAN-1213956US

PATIENT
  Sex: Male

DRUGS (2)
  1. OFLOXACIN UNK [Suspect]
     Indication: DRUG USE FOR UNKNOWN INDICATION
  2. CIPROFLOXACIN [Suspect]
     Indication: DRUG USE FOR UNKNOWN INDICATION

REACTIONS (7)
  - Death [Fatal]
  - Toxicity to various agents [Unknown]
  - Feeling abnormal [Unknown]
  - Malaise [Unknown]
  - Shock [Unknown]
  - Tendonitis [Unknown]
  - Adverse drug reaction [Unknown]
